FAERS Safety Report 20409957 (Version 1)
Quarter: 2022Q1

REPORT INFORMATION
  Report Type: Spontaneous
  Country: US (occurrence: US)
  Receive Date: 20220201
  Receipt Date: 20220201
  Transmission Date: 20220423
  Serious: No
  Sender: FDA-Public Use
  Company Number: US-SA-SAC20220127001045

PATIENT
  Sex: Female

DRUGS (14)
  1. DUPIXENT [Suspect]
     Active Substance: DUPILUMAB
     Indication: Dermatitis atopic
     Dosage: 300 MG, QOW
     Route: 058
     Dates: start: 20180920
  2. GABAPENTIN [Concomitant]
     Active Substance: GABAPENTIN
  3. IMITREX [Concomitant]
     Active Substance: SUMATRIPTAN SUCCINATE
     Indication: Migraine
  4. KEPPRA [Concomitant]
     Active Substance: LEVETIRACETAM
  5. ORENCIA [Concomitant]
     Active Substance: ABATACEPT
     Indication: Rheumatoid arthritis
  6. OXYCODONE [Concomitant]
     Active Substance: OXYCODONE
  7. OMEPRAZOLE [Concomitant]
     Active Substance: OMEPRAZOLE
     Indication: Gastrooesophageal reflux disease
  8. OMEPRAZOLE [Concomitant]
     Active Substance: OMEPRAZOLE
     Indication: Oesophagitis
  9. TEGRETOL [Concomitant]
     Active Substance: CARBAMAZEPINE
  10. TOPAMAX [Concomitant]
     Active Substance: TOPIRAMATE
  11. TRAZODONE [Concomitant]
     Active Substance: TRAZODONE HYDROCHLORIDE
  12. XANAX XR [Concomitant]
     Active Substance: ALPRAZOLAM
  13. CYMBALTA [Concomitant]
     Active Substance: DULOXETINE HYDROCHLORIDE
  14. MAGNESIUM [Concomitant]
     Active Substance: MAGNESIUM

REACTIONS (2)
  - COVID-19 [Unknown]
  - Product dose omission issue [Unknown]
